FAERS Safety Report 5130533-4 (Version None)
Quarter: 2006Q4

REPORT INFORMATION
  Report Type: 
  Country: None (occurrence: None)
  Receive Date: 20061013
  Receipt Date: 20061003
  Transmission Date: 20070319
  Serious: Yes (Other)
  Sender: FDA-Public Use
  Company Number: US-GDP-0613675

PATIENT
  Age: 40 Year
  Sex: Female

DRUGS (1)
  1. TRI-LUMA [Suspect]
     Dosage: 1 APP QD TP
     Route: 061
     Dates: start: 20060901

REACTIONS (2)
  - OPTIC NEURITIS [None]
  - VISUAL DISTURBANCE [None]
